FAERS Safety Report 14215768 (Version 1)
Quarter: 2017Q4

REPORT INFORMATION
  Report Type: Spontaneous
  Country: TW (occurrence: TW)
  Receive Date: 20171122
  Receipt Date: 20171122
  Transmission Date: 20180321
  Serious: Yes (Other)
  Sender: FDA-Public Use
  Company Number: TW-AMGEN-TWNSP2017171805

PATIENT
  Age: 58 Year
  Sex: Female

DRUGS (3)
  1. PROLIA [Suspect]
     Active Substance: DENOSUMAB
     Indication: THORACIC VERTEBRAL FRACTURE
  2. PROLIA [Suspect]
     Active Substance: DENOSUMAB
     Indication: LUMBAR VERTEBRAL FRACTURE
  3. PROLIA [Suspect]
     Active Substance: DENOSUMAB
     Indication: OSTEOPOROSIS
     Dosage: UNK UNK, Q6MO
     Route: 065
     Dates: start: 2015

REACTIONS (14)
  - Osteoporosis [Unknown]
  - Cardiovascular disorder [Unknown]
  - Mobility decreased [Unknown]
  - Back pain [Not Recovered/Not Resolved]
  - Hypotonia [Unknown]
  - Muscle rigidity [Unknown]
  - Flatulence [Unknown]
  - Spinal pain [Not Recovered/Not Resolved]
  - Gastrointestinal disorder [Unknown]
  - Loose tooth [Unknown]
  - Fracture [Not Recovered/Not Resolved]
  - Musculoskeletal chest pain [Not Recovered/Not Resolved]
  - Bone pain [Not Recovered/Not Resolved]
  - Chronic obstructive pulmonary disease [Unknown]

NARRATIVE: CASE EVENT DATE: 2017
